FAERS Safety Report 15810148 (Version 1)
Quarter: 2019Q1

REPORT INFORMATION
  Report Type: Spontaneous
  Country: US (occurrence: US)
  Receive Date: 20190111
  Receipt Date: 20190111
  Transmission Date: 20190417
  Serious: Yes (Life-Threatening)
  Sender: FDA-Public Use
  Company Number: US-ROCHE-2136367

PATIENT
  Age: 14 Year
  Sex: Female

DRUGS (2)
  1. RITUXAN [Suspect]
     Active Substance: RITUXIMAB
     Indication: IMMUNE THROMBOCYTOPENIC PURPURA
     Route: 065
  2. RITUXAN [Suspect]
     Active Substance: RITUXIMAB
     Indication: EVANS SYNDROME

REACTIONS (4)
  - Off label use [Unknown]
  - Intentional product use issue [Unknown]
  - Drug specific antibody present [Not Recovered/Not Resolved]
  - Anaphylactic reaction [Recovered/Resolved]
